FAERS Safety Report 11269841 (Version 1)
Quarter: 2015Q3

REPORT INFORMATION
  Report Type: Spontaneous
  Country: US (occurrence: None)
  Receive Date: 20150713
  Receipt Date: 20150713
  Transmission Date: 20151125
  Serious: No
  Sender: FDA-Public Use
  Company Number: None

PATIENT
  Age: 40 Year
  Sex: Female
  Weight: 63.5 kg

DRUGS (1)
  1. BEN-GAY [Suspect]
     Active Substance: MENTHOL\METHYL SALICYLATE

REACTIONS (1)
  - Application site burn [None]
